FAERS Safety Report 9863805 (Version 1)
Quarter: 2014Q1

REPORT INFORMATION
  Report Type: Spontaneous
  Country: DE (occurrence: DE)
  Receive Date: 20140203
  Receipt Date: 20140203
  Transmission Date: 20141002
  Serious: Yes (Other)
  Sender: FDA-Public Use
  Company Number: DE-ACTAVIS-2014-01108

PATIENT
  Age: 62 Year
  Sex: Male
  Weight: 86 kg

DRUGS (6)
  1. FLUVASTATIN (UNKNOWN) [Suspect]
     Indication: HYPERCHOLESTEROLAEMIA
     Dosage: LOWEST DOSAGE
     Route: 048
     Dates: start: 2008, end: 2013
  2. PRAVASTATIN (UNKNOWN) [Suspect]
     Indication: HYPERCHOLESTEROLAEMIA
     Dosage: LOWEST DOSE
     Route: 048
     Dates: start: 2008, end: 2013
  3. SIMVASTATIN (UNKNOWN) [Suspect]
     Indication: HYPERCHOLESTEROLAEMIA
     Dosage: LOWEST DOSE
     Route: 048
     Dates: start: 2008, end: 2013
  4. ATORVASTATIN (UNKNOWN) [Suspect]
     Indication: HYPERCHOLESTEROLAEMIA
     Dosage: LOSEST DOSAGE
     Route: 048
     Dates: start: 2008, end: 2013
  5. GEMFIBROZIL (UNKNOWN) [Suspect]
     Indication: HYPERCHOLESTEROLAEMIA
     Dosage: LOWEST DOSAGE
     Route: 048
     Dates: start: 2008, end: 2013
  6. EZETIMIBE [Suspect]
     Indication: HYPERCHOLESTEROLAEMIA
     Dosage: LOWEST DOSE
     Route: 048
     Dates: start: 2008, end: 2013

REACTIONS (5)
  - Muscle atrophy [Recovered/Resolved]
  - Muscular weakness [Recovered/Resolved]
  - Nausea [Recovered/Resolved]
  - Retching [Recovered/Resolved]
  - Myalgia [Recovered/Resolved]
